FAERS Safety Report 7641130-0 (Version None)
Quarter: 2011Q3

REPORT INFORMATION
  Report Type: 
  Country: None (occurrence: None)
  Receive Date: 20110728
  Receipt Date: 20110715
  Transmission Date: 20111222
  Serious: Yes (Hospitalization, Other)
  Sender: FDA-Public Use
  Company Number: CA-ELI_LILLY_AND_COMPANY-CA201107004212

PATIENT
  Sex: Female

DRUGS (11)
  1. ZYPREXA [Suspect]
     Dosage: 20 MG, QD
  2. CLONAZEPAM [Concomitant]
  3. RABEPRAZOLE SODIUM [Concomitant]
  4. BROMAZEPAM [Concomitant]
  5. ZYPREXA [Suspect]
     Dosage: 10 MG, QD
  6. ZYPREXA ZYDIS [Suspect]
     Dosage: 10 MG, QD
  7. FLUOXETINE [Concomitant]
  8. ZYPREXA [Suspect]
     Indication: BIPOLAR DISORDER
     Dosage: 5 MG, EACH EVENING
     Dates: start: 19990519
  9. ZYPREXA ZYDIS [Suspect]
     Indication: BIPOLAR DISORDER
     Dosage: 5 MG, QD
  10. TRIMIPRAMINE MALEATE [Concomitant]
  11. ZYPREXA [Suspect]
     Dosage: 5 MG, PRN

REACTIONS (8)
  - HYPERGLYCAEMIA [None]
  - HYPOKALAEMIA [None]
  - HYPERTENSION [None]
  - HYDROCEPHALUS [None]
  - SUBARACHNOID HAEMORRHAGE [None]
  - ANEURYSM RUPTURED [None]
  - ARRHYTHMIA [None]
  - VASOSPASM [None]
